FAERS Safety Report 24451598 (Version 2)
Quarter: 2025Q1

REPORT INFORMATION
  Report Type: Spontaneous
  Country: GB (occurrence: GB)
  Receive Date: 20241017
  Receipt Date: 20250123
  Transmission Date: 20250408
  Serious: Yes (Death, Other)
  Sender: ELI LILLY AND COMPANY
  Company Number: GB-Morningside Healthcare Ltd-MSH202409-000496

PATIENT
  Age: 44 Year
  Sex: Female

DRUGS (5)
  1. DULOXETINE HYDROCHLORIDE [Suspect]
     Active Substance: DULOXETINE HYDROCHLORIDE
     Indication: Product used for unknown indication
     Route: 065
  2. SODIUM NITRATE [Suspect]
     Active Substance: SODIUM NITRATE
     Indication: Product used for unknown indication
     Route: 065
  3. VENLAFAXINE [Suspect]
     Active Substance: VENLAFAXINE HYDROCHLORIDE
     Indication: Product used for unknown indication
     Dosage: 150 MG, DAILY
     Route: 065
  4. VENLAFAXINE [Suspect]
     Active Substance: VENLAFAXINE HYDROCHLORIDE
     Dosage: 112.5 MG, DAILY
     Route: 065
  5. VENLAFAXINE [Suspect]
     Active Substance: VENLAFAXINE HYDROCHLORIDE
     Route: 065

REACTIONS (8)
  - Completed suicide [Fatal]
  - Suicidal ideation [Fatal]
  - Withdrawal syndrome [Fatal]
  - Suicidal behaviour [Fatal]
  - Intentional overdose [Fatal]
  - Derealisation [Unknown]
  - Crying [Unknown]
  - Partner stress [Unknown]
